FAERS Safety Report 12074281 (Version 1)
Quarter: 2016Q1

REPORT INFORMATION
  Report Type: Report from Study
  Country: DE (occurrence: DE)
  Receive Date: 20160212
  Receipt Date: 20160212
  Transmission Date: 20160526
  Serious: No
  Sender: FDA-Public Use
  Company Number: PHHY2016DE019263

PATIENT
  Sex: Female

DRUGS (1)
  1. TASIGNA [Suspect]
     Active Substance: NILOTINIB
     Indication: CHRONIC MYELOID LEUKAEMIA
     Dosage: 150 MG, QID
     Route: 065
     Dates: start: 201511, end: 20160119

REACTIONS (6)
  - Neurodermatitis [Unknown]
  - Skin tightness [Unknown]
  - Skin disorder [Unknown]
  - Dry skin [Unknown]
  - Eye swelling [Unknown]
  - Rash pustular [Unknown]

NARRATIVE: CASE EVENT DATE: 2015
